FAERS Safety Report 12122444 (Version 1)
Quarter: 2016Q1

REPORT INFORMATION
  Report Type: Spontaneous
  Country: DE (occurrence: DE)
  Receive Date: 20160226
  Receipt Date: 20160226
  Transmission Date: 20160526
  Serious: Yes (Life-Threatening, Hospitalization, Disabling)
  Sender: FDA-Public Use
  Company Number: DE-ASTRAZENECA-2016SE20069

PATIENT
  Age: 77 Year
  Sex: Female

DRUGS (1)
  1. QUETIAPINE [Suspect]
     Active Substance: QUETIAPINE
     Route: 048

REACTIONS (3)
  - Pancreatitis necrotising [Recovered/Resolved with Sequelae]
  - Pancreatic pseudocyst [Unknown]
  - Obstruction gastric [Unknown]

NARRATIVE: CASE EVENT DATE: 201507
